FAERS Safety Report 12892828 (Version 1)
Quarter: 2016Q4

REPORT INFORMATION
  Report Type: Report from Study
  Country: SG (occurrence: SG)
  Receive Date: 20161028
  Receipt Date: 20161028
  Transmission Date: 20170207
  Serious: Yes (Hospitalization, Other)
  Sender: FDA-Public Use
  Company Number: SG-PFIZER INC-2016489406

PATIENT
  Age: 68 Year
  Sex: Male

DRUGS (7)
  1. PACLITAXEL. [Suspect]
     Active Substance: PACLITAXEL
     Indication: NON-SMALL CELL LUNG CANCER
     Dosage: 200 MG/M2, ON DAY 1 OF EACH 21-DAY CYCLE, FOR 4 TO 6 CYCLES OR UNTIL DOCUMENTED PD
     Route: 042
  2. CISPLATIN. [Suspect]
     Active Substance: CISPLATIN
     Indication: NON-SMALL CELL LUNG CANCER
     Dosage: 75 MG/M2, ON DAY 1 OF EACH 21-DAY CYCLE, FOR 4 TO 6 CYCLES OR UNTIL DOCUMENTED PD
     Route: 042
  3. PEMETREXED [Suspect]
     Active Substance: PEMETREXED
     Indication: NON-SMALL CELL LUNG CANCER
     Dosage: 500 MG/M2, (AUC 5 OR 6) ON DAY 1 OF EACH 21-DAY CYCLE, FOR 4 TO 6 CYCLES OR UNTIL DOCUMENTED PD
     Route: 042
  4. TREMELIMUMAB [Suspect]
     Active Substance: TREMELIMUMAB
     Indication: NON-SMALL CELL LUNG CANCER
     Dosage: 1 MG/KG, ONCE EVERY 4 WEEKS
     Route: 042
  5. GEMCITABINE HYDROCHLORIDE. [Suspect]
     Active Substance: GEMCITABINE HYDROCHLORIDE
     Indication: NON-SMALL CELL LUNG CANCER
     Dosage: 1000 OR 1250 MG/M2 ON DAYS 1 AND 8 OF EACH 21-DAY CYCLE
     Route: 042
  6. CARBOPLATIN. [Suspect]
     Active Substance: CARBOPLATIN
     Indication: NON-SMALL CELL LUNG CANCER
     Dosage: AUC 5 OR 6 ON DAY 1 OF EACH 21-DAY CYCLE, FOR 4 TO 6 CYCLES OR UNTIL DOCUMENTED PD
     Route: 042
  7. MEDI4736 [Suspect]
     Active Substance: DURVALUMAB
     Indication: NON-SMALL CELL LUNG CANCER
     Dosage: 20 MG/KG, EVERY 4 WEEKS
     Route: 042

REACTIONS (1)
  - Superior vena cava occlusion [Recovered/Resolved with Sequelae]

NARRATIVE: CASE EVENT DATE: 20161006
